FAERS Safety Report 12291594 (Version 1)
Quarter: 2016Q2

REPORT INFORMATION
  Report Type: Spontaneous
  Country: US (occurrence: US)
  Receive Date: 20160421
  Receipt Date: 20160421
  Transmission Date: 20160815
  Serious: No
  Sender: FDA-Public Use
  Company Number: US-AMGEN-USASP2016020038

PATIENT
  Age: 71 Year
  Sex: Male
  Weight: 73.16 kg

DRUGS (20)
  1. ALTACE [Concomitant]
     Active Substance: RAMIPRIL
     Dosage: 10 MG, QD
     Route: 048
     Dates: start: 20121121
  2. VIAGRA [Concomitant]
     Active Substance: SILDENAFIL CITRATE
     Dosage: 100 MG, AS NECESSARY
     Route: 048
     Dates: start: 20140512
  3. ASPIRIN                            /00002701/ [Concomitant]
     Active Substance: ASPIRIN
     Dosage: 81 MG, QD
     Route: 048
     Dates: start: 20121121
  4. FISH OIL [Concomitant]
     Active Substance: FISH OIL
     Dosage: 1 UNK, QD
     Route: 048
     Dates: start: 20121121
  5. FLUCONAZOLE. [Concomitant]
     Active Substance: FLUCONAZOLE
     Dosage: 1 DF, AS NECESSARY
     Route: 048
     Dates: start: 20140405
  6. GLUCOSAMINE [Concomitant]
     Active Substance: GLUCOSAMINE
     Dosage: 1 DF, QD
     Route: 048
  7. CO Q 10                            /00517201/ [Concomitant]
     Dosage: 30 MG, QD
     Dates: start: 20121121
  8. ZETIA [Concomitant]
     Active Substance: EZETIMIBE
     Dosage: 10 MG, UNK
  9. COREG CR [Concomitant]
     Active Substance: CARVEDILOL PHOSPHATE
     Dosage: 10 MG, BID
     Route: 048
     Dates: start: 20121121
  10. PROTONIX                           /00661201/ [Concomitant]
     Active Substance: OMEPRAZOLE
     Dosage: 40 MG, QD
     Route: 048
     Dates: start: 20121121
  11. TETRACYCLINE [Concomitant]
     Active Substance: TETRACYCLINE
     Dosage: 250 MG, UNK
     Route: 048
     Dates: start: 20140130
  12. ZETLAM [Concomitant]
     Dosage: 10 MG, QD
     Route: 048
     Dates: start: 20121121
  13. CRESTOR [Concomitant]
     Active Substance: ROSUVASTATIN CALCIUM
     Dosage: 5 MG, QD
     Route: 048
     Dates: start: 20121121
  14. AMOXICILLIN. [Concomitant]
     Active Substance: AMOXICILLIN
     Dosage: 500 MG, QID
     Route: 048
     Dates: start: 20150422
  15. TRIAMCINOLONE ACETONIDE. [Concomitant]
     Active Substance: TRIAMCINOLONE ACETONIDE
     Dosage: 0.025 UNK, UNK
     Route: 061
     Dates: start: 20150205
  16. TRICOR                             /00090101/ [Concomitant]
     Active Substance: ADENOSINE
     Dosage: 145 MG, QD
     Route: 048
     Dates: start: 20140310
  17. VITAMIN E                          /00110501/ [Concomitant]
     Active Substance: TOCOPHEROL
     Dosage: 1000 IU, QD
     Dates: start: 20121121
  18. REPATHA [Suspect]
     Active Substance: EVOLOCUMAB
     Indication: HYPERCHOLESTEROLAEMIA
     Dosage: 140 MG, Q2WK
     Route: 058
     Dates: start: 20160102, end: 20160213
  19. CIALIS [Concomitant]
     Active Substance: TADALAFIL
     Dosage: 5 MG, QD
     Route: 048
     Dates: start: 20130507
  20. 5 FU [Concomitant]
     Active Substance: FLUOROURACIL
     Dosage: 2 %, UNK
     Dates: start: 20150205

REACTIONS (1)
  - Myalgia [Recovered/Resolved]

NARRATIVE: CASE EVENT DATE: 20160213
